FAERS Safety Report 16547975 (Version 1)
Quarter: 2019Q3

REPORT INFORMATION
  Report Type: Spontaneous
  Country: US (occurrence: US)
  Receive Date: 20190709
  Receipt Date: 20190709
  Transmission Date: 20191004
  Serious: No
  Sender: FDA-Public Use
  Company Number: US-ASTELLAS-2019US018145

PATIENT
  Age: 92 Year
  Sex: Female

DRUGS (1)
  1. MYRBETRIQ [Suspect]
     Active Substance: MIRABEGRON
     Indication: PRODUCT USED FOR UNKNOWN INDICATION
     Route: 065
     Dates: start: 201902

REACTIONS (4)
  - Bladder discomfort [Unknown]
  - Chromaturia [Unknown]
  - Urinary incontinence [Unknown]
  - Drug ineffective [Unknown]
